FAERS Safety Report 15018561 (Version 3)
Quarter: 2018Q3

REPORT INFORMATION
  Report Type: Report from Study
  Country: BR (occurrence: BR)
  Receive Date: 20180615
  Receipt Date: 20180802
  Transmission Date: 20181010
  Serious: Yes (Hospitalization)
  Sender: FDA-Public Use
  Company Number: BR-BIOGEN-2018BI00593350

PATIENT
  Age: 31 Year
  Sex: Female

DRUGS (5)
  1. TYSABRI [Suspect]
     Active Substance: NATALIZUMAB
     Indication: MULTIPLE SCLEROSIS
     Route: 042
     Dates: start: 20170117
  2. DOLAMIN FLEX [Concomitant]
     Active Substance: CLONIXIN\CYCLOBENZAPRINE
     Indication: MYALGIA
     Route: 065
  3. MERCILON CONTI [Concomitant]
     Active Substance: DESOGESTREL\ETHINYL ESTRADIOL
     Indication: CONTRACEPTION
     Route: 065
  4. DORFLEX [Concomitant]
     Active Substance: CAFFEINE\DIPYRONE\ORPHENADRINE
     Indication: PRODUCT USED FOR UNKNOWN INDICATION
     Route: 065
  5. IBUPROFEN. [Concomitant]
     Active Substance: IBUPROFEN
     Indication: ARTHRALGIA
     Route: 065

REACTIONS (16)
  - Pain in extremity [Unknown]
  - Dysgeusia [Unknown]
  - Musculoskeletal stiffness [Unknown]
  - Nausea [Unknown]
  - Vision blurred [Unknown]
  - Drug ineffective [Unknown]
  - Dizziness [Recovered/Resolved]
  - Diplopia [Unknown]
  - Tremor [Unknown]
  - Hypoaesthesia [Recovered/Resolved]
  - Multiple sclerosis relapse [Recovered/Resolved]
  - Anxiety [Unknown]
  - Movement disorder [Unknown]
  - Eye pain [Unknown]
  - Speech disorder [Unknown]
  - Headache [Unknown]

NARRATIVE: CASE EVENT DATE: 2017
